FAERS Safety Report 12322240 (Version 16)
Quarter: 2019Q1

REPORT INFORMATION
  Report Type: Spontaneous
  Country: DE (occurrence: DE)
  Receive Date: 20160502
  Receipt Date: 20190305
  Transmission Date: 20190417
  Serious: Yes (Death, Hospitalization, Other)
  Sender: FDA-Public Use
  Company Number: DE-SA-2016SA080913

PATIENT
  Age: 38 Year
  Sex: Female
  Weight: 97 kg

DRUGS (4)
  1. TECFIDERA [Concomitant]
     Active Substance: DIMETHYL FUMARATE
     Indication: RELAPSING-REMITTING MULTIPLE SCLEROSIS
  2. FAMPYRA [Concomitant]
     Active Substance: DALFAMPRIDINE
     Indication: RELAPSING-REMITTING MULTIPLE SCLEROSIS
     Dosage: 10 MG,BID
  3. LEMTRADA [Suspect]
     Active Substance: ALEMTUZUMAB
     Indication: RELAPSING-REMITTING MULTIPLE SCLEROSIS
     Dosage: 12 MG,QD
     Route: 041
     Dates: start: 20160418, end: 20160420
  4. CORTISONE [Concomitant]
     Active Substance: CORTISONE\HYDROCORTISONE
     Indication: RELAPSING-REMITTING MULTIPLE SCLEROSIS
     Dosage: UNK UNK,UNK
     Route: 065

REACTIONS (8)
  - Seizure [Fatal]
  - Cerebral haemorrhage [Fatal]
  - Headache [Fatal]
  - Fatigue [Fatal]
  - Bradycardia [Fatal]
  - Vomiting [Fatal]
  - Loss of consciousness [Fatal]
  - Paraesthesia [Fatal]

NARRATIVE: CASE EVENT DATE: 20160418
